FAERS Safety Report 5503036-2 (Version None)
Quarter: 2007Q4

REPORT INFORMATION
  Report Type: 
  Country: None (occurrence: None)
  Receive Date: 20071031
  Receipt Date: 20071024
  Transmission Date: 20080405
  Serious: Yes (Death)
  Sender: FDA-Public Use
  Company Number: US-ROCHE-527515

PATIENT
  Age: 57 Year
  Sex: Male

DRUGS (2)
  1. PEG-INTERFERON A-2A (RO 25-8310) [Suspect]
     Route: 065
     Dates: start: 20070527
  2. RIBAVIRIN [Suspect]
     Route: 065
     Dates: start: 20070527

REACTIONS (1)
  - MYOCARDIAL INFARCTION [None]
